FAERS Safety Report 23453979 (Version 1)
Quarter: 2024Q1

REPORT INFORMATION
  Report Type: Spontaneous
  Country: US (occurrence: US)
  Receive Date: 20240130
  Receipt Date: 20240130
  Transmission Date: 20240409
  Serious: No
  Sender: FDA-Public Use
  Company Number: US-HORIZON THERAPEUTICS-HZN-2023-001503

PATIENT

DRUGS (2)
  1. PENNSAID [Suspect]
     Active Substance: DICLOFENAC SODIUM
     Indication: Osteoarthritis
     Dosage: 40 MG, BID (2 PUMPS TWICE A DAY)(APPLY 2 PUMP ACTUATIONS TO AFFECTED AREAS TWICE A DAY AS DIRECTED B
     Route: 061
     Dates: start: 20230412
  2. PENNSAID [Suspect]
     Active Substance: DICLOFENAC SODIUM
     Indication: Osteoarthritis

REACTIONS (7)
  - Nausea [Unknown]
  - Vomiting [Unknown]
  - Product supply issue [Unknown]
  - Arthropathy [Unknown]
  - Product dose omission issue [Unknown]
  - Insurance issue [Unknown]
  - Off label use [Unknown]
